FAERS Safety Report 13514465 (Version 3)
Quarter: 2018Q1

REPORT INFORMATION
  Report Type: Spontaneous
  Country: US (occurrence: US)
  Receive Date: 20170504
  Receipt Date: 20180108
  Transmission Date: 20180508
  Serious: No
  Sender: FDA-Public Use
  Company Number: US-LUNDBECK-DKLU2029934

PATIENT
  Age: 19 Year
  Sex: Male

DRUGS (2)
  1. NORTHERA [Suspect]
     Active Substance: DROXIDOPA
     Route: 048
     Dates: start: 20170430, end: 20170513
  2. NORTHERA [Suspect]
     Active Substance: DROXIDOPA
     Indication: POSTURAL ORTHOSTATIC TACHYCARDIA SYNDROME
     Dosage: SCHEDULE B TITRATION COMPLETE
     Route: 065
     Dates: start: 20170420

REACTIONS (3)
  - Fatigue [Unknown]
  - Drug ineffective [Unknown]
  - Off label use [Unknown]

NARRATIVE: CASE EVENT DATE: 20170420
